FAERS Safety Report 9723332 (Version 1)
Quarter: 2013Q4

REPORT INFORMATION
  Report Type: Spontaneous
  Country: US (occurrence: US)
  Receive Date: 20131202
  Receipt Date: 20131202
  Transmission Date: 20140711
  Serious: No
  Sender: FDA-Public Use
  Company Number: US-GLAXOSMITHKLINE-A1008378A

PATIENT
  Sex: Female

DRUGS (3)
  1. FLOVENT [Suspect]
     Route: 065
     Dates: start: 2012, end: 201301
  2. THYROID MEDICATION [Concomitant]
  3. XANAX [Concomitant]

REACTIONS (3)
  - Hypertension [Not Recovered/Not Resolved]
  - Anxiety [Not Recovered/Not Resolved]
  - Withdrawal syndrome [Not Recovered/Not Resolved]
